FAERS Safety Report 7692978-8 (Version None)
Quarter: 2011Q3

REPORT INFORMATION
  Report Type: 
  Country: None (occurrence: None)
  Receive Date: 20110819
  Receipt Date: 20110808
  Transmission Date: 20111222
  Serious: Yes (Hospitalization, Other)
  Sender: FDA-Public Use
  Company Number: GB-NOVOPROD-329618

PATIENT

DRUGS (7)
  1. LISINOPRIL [Concomitant]
  2. GABAPENTIN [Concomitant]
  3. ALBUTEROL [Concomitant]
  4. BUPIVACAINE HCL [Concomitant]
     Dosage: 2.5 ML OF  HEAVY 0.5 %
  5. AMLODIPINE [Concomitant]
  6. MIXTARD HUMAN 70/30 [Suspect]
     Indication: TYPE 2 DIABETES MELLITUS
     Route: 058
  7. DIAMORPHINE [Concomitant]
     Dosage: 300 MCG

REACTIONS (1)
  - MUSCLE SPASMS [None]
